FAERS Safety Report 17767869 (Version 1)
Quarter: 2020Q2

REPORT INFORMATION
  Report Type: Spontaneous
  Country: FR (occurrence: FR)
  Receive Date: 20200511
  Receipt Date: 20200511
  Transmission Date: 20200714
  Serious: Yes (Hospitalization)
  Sender: FDA-Public Use
  Company Number: FR-PFIZER INC-2020185637

PATIENT
  Age: 73 Year
  Sex: Female
  Weight: 76 kg

DRUGS (2)
  1. CYTARABINE ACCORD [Suspect]
     Active Substance: CYTARABINE
     Indication: ACUTE MYELOID LEUKAEMIA
     Dosage: 100 MG/M2, DAILY
     Route: 042
     Dates: start: 20180501, end: 20180507
  2. ZAVEDOS [Suspect]
     Active Substance: IDARUBICIN
     Indication: ACUTE MYELOID LEUKAEMIA
     Dosage: 8 MG/M2, DAILY
     Route: 042
     Dates: start: 20180501, end: 20180505

REACTIONS (2)
  - Lung disorder [Not Recovered/Not Resolved]
  - Bone marrow failure [Recovered/Resolved]

NARRATIVE: CASE EVENT DATE: 20180504
